FAERS Safety Report 24023748 (Version 2)
Quarter: 2024Q3

REPORT INFORMATION
  Report Type: Report from Study
  Country: LT (occurrence: LT)
  Receive Date: 20240627
  Receipt Date: 20240710
  Transmission Date: 20241017
  Serious: No
  Sender: ROCHE
  Company Number: LT-ROCHE-2979247

PATIENT
  Age: 69 Year
  Sex: Female
  Weight: 80.0 kg

DRUGS (11)
  1. ALECTINIB [Suspect]
     Active Substance: ALECTINIB
     Indication: Lung cancer metastatic
     Dosage: LAST DOSE OF ALECTINIB ADMINISTERED PRIOR AE WAS 600 MG ON 23/SEP/2019, 12/FEB/2023
     Route: 048
     Dates: start: 20210614
  2. INDAPAMIDE\PERINDOPRIL [Concomitant]
     Active Substance: INDAPAMIDE\PERINDOPRIL
     Indication: Hypertension
     Route: 048
  3. NEBIVOLOL [Concomitant]
     Active Substance: NEBIVOLOL
     Indication: Hypertension
     Route: 048
  4. MAGNESIUM [Concomitant]
     Active Substance: MAGNESIUM
     Indication: Hypomagnesaemia
     Route: 048
     Dates: start: 202101
  5. ZOLPIDEM TARTRATE [Concomitant]
     Active Substance: ZOLPIDEM TARTRATE
     Dosage: FREQUENCY TEXT:PRN
     Route: 048
     Dates: start: 20220602
  6. NITROFURANTOIN [Concomitant]
     Active Substance: NITROFURANTOIN
     Route: 048
     Dates: start: 20220809, end: 20220818
  7. NIMESULIDUM [Concomitant]
     Dosage: FREQUENCY TEXT:PRN
     Route: 048
     Dates: start: 20220809, end: 20220818
  8. ROSUVASTATIN [Concomitant]
     Active Substance: ROSUVASTATIN
     Indication: Hyperlipidaemia
     Route: 048
     Dates: start: 20230110
  9. LACIDIPIN [Concomitant]
     Indication: Hypertension
     Route: 048
     Dates: start: 20230203, end: 20230305
  10. ORNITHINE ASPARTATE [Concomitant]
     Active Substance: ORNITHINE ASPARTATE
     Indication: Hypertension
     Route: 048
     Dates: start: 20230214, end: 20230223
  11. CAPTOPRIL [Concomitant]
     Active Substance: CAPTOPRIL
     Indication: Hypertension
     Route: 048
     Dates: start: 20230522, end: 20230522

REACTIONS (3)
  - Aspartate aminotransferase increased [Recovered/Resolved]
  - Alanine aminotransferase increased [Recovered/Resolved]
  - Blood bilirubin increased [Recovering/Resolving]

NARRATIVE: CASE EVENT DATE: 20211206
